FAERS Safety Report 6644000-X (Version None)
Quarter: 2010Q1

REPORT INFORMATION
  Report Type: 
  Country: None (occurrence: None)
  Receive Date: 20100319
  Receipt Date: 20100319
  Transmission Date: 20100710
  Serious: Yes (Hospitalization, Disabling)
  Sender: FDA-Public Use
  Company Number: None

PATIENT
  Sex: Female
  Weight: 88.4514 kg

DRUGS (1)
  1. FLUPHENAZINE [Suspect]
     Indication: BIPOLAR DISORDER
     Dosage: 2.5 MG 1 TAB AT BEDTIME
     Dates: start: 20090814, end: 20091030

REACTIONS (5)
  - ASTHENIA [None]
  - BALANCE DISORDER [None]
  - FATIGUE [None]
  - PARKINSON'S DISEASE [None]
  - WALKING AID USER [None]
